FAERS Safety Report 5615793-5 (Version None)
Quarter: 2008Q1

REPORT INFORMATION
  Report Type: 
  Country: None (occurrence: None)
  Receive Date: 20080201
  Receipt Date: 20080122
  Transmission Date: 20080703
  Serious: Yes (Other)
  Sender: FDA-Public Use
  Company Number: 2008AP000270

PATIENT
  Age: 49 Year
  Sex: Female

DRUGS (7)
  1. PAROXETINE HCL [Suspect]
     Indication: ANXIETY
     Dosage: PO; 20 MG;PO;QD; 20 MG; PO; 20 MG;SYR;PO
     Route: 048
     Dates: start: 19980319
  2. PAROXETINE HCL [Suspect]
     Indication: ANXIETY
     Dosage: PO; 20 MG;PO;QD; 20 MG; PO; 20 MG;SYR;PO
     Route: 048
     Dates: start: 20011001
  3. PAROXETINE HCL [Suspect]
     Indication: ANXIETY
     Dosage: PO; 20 MG;PO;QD; 20 MG; PO; 20 MG;SYR;PO
     Route: 048
     Dates: start: 20031007
  4. PAROXETINE HCL [Suspect]
     Indication: ANXIETY
     Dosage: PO; 20 MG;PO;QD; 20 MG; PO; 20 MG;SYR;PO
     Route: 048
     Dates: start: 20041010
  5. DULOXETINE HYDROCHLORIDE (DULOXETINE HYDROCHLORIDE) [Concomitant]
  6. LOFEPRAMINE (LOFEPRAMINE) [Concomitant]
  7. MIRTAZAPINE [Concomitant]

REACTIONS (20)
  - CONFUSIONAL STATE [None]
  - DEPRESSED MOOD [None]
  - DEREALISATION [None]
  - DIARRHOEA [None]
  - DISORIENTATION [None]
  - DIZZINESS [None]
  - DRUG WITHDRAWAL SYNDROME [None]
  - EYE DISORDER [None]
  - FATIGUE [None]
  - GAIT DISTURBANCE [None]
  - HALLUCINATION, AUDITORY [None]
  - HEADACHE [None]
  - HYPOAESTHESIA [None]
  - INDIFFERENCE [None]
  - MEMORY IMPAIRMENT [None]
  - NEUROLOGICAL SYMPTOM [None]
  - PARAESTHESIA [None]
  - SENSORY DISTURBANCE [None]
  - TEARFULNESS [None]
  - VISUAL DISTURBANCE [None]
